FAERS Safety Report 6259386-8 (Version None)
Quarter: 2009Q3

REPORT INFORMATION
  Report Type: 
  Country: None (occurrence: None)
  Receive Date: 20090706
  Receipt Date: 20090629
  Transmission Date: 20100115
  Serious: Yes (Death)
  Sender: FDA-Public Use
  Company Number: 2009US001694

PATIENT
  Age: 49 Year
  Sex: Female

DRUGS (2)
  1. PROGRAF [Suspect]
     Indication: HEART TRANSPLANT
     Dosage: 5.5 MG, BID,
     Dates: start: 20051109, end: 20090427
  2. CELLCEPT [Concomitant]

REACTIONS (1)
  - CARDIAC ARREST [None]
